FAERS Safety Report 21732398 (Version 3)
Quarter: 2022Q4

REPORT INFORMATION
  Report Type: Spontaneous
  Country: JP (occurrence: JP)
  Receive Date: 20221215
  Receipt Date: 20221226
  Transmission Date: 20230113
  Serious: Yes (Other)
  Sender: FDA-Public Use
  Company Number: JP-ABBVIE-4237934

PATIENT
  Age: 68 Year
  Sex: Female

DRUGS (3)
  1. RINVOQ [Suspect]
     Active Substance: UPADACITINIB
     Indication: Rheumatoid arthritis
     Dosage: FORM STRENGTH- 7.5 MILLIGRAM
     Route: 048
     Dates: start: 20210921, end: 20221213
  2. CELECOXIB [Concomitant]
     Active Substance: CELECOXIB
     Indication: Product used for unknown indication
     Dosage: FORM STRENGTH: 100?FREQUENCY- AT THE TIME OF PAIN
     Route: 048
  3. REBAMIPIDE [Concomitant]
     Active Substance: REBAMIPIDE
     Indication: Product used for unknown indication
     Dosage: FREQUENCY- AT THE TIME OF PAIN
     Route: 048

REACTIONS (1)
  - Colon cancer [Unknown]
